FAERS Safety Report 10154243 (Version 3)
Quarter: 2014Q3

REPORT INFORMATION
  Report Type: Spontaneous
  Country: US (occurrence: US)
  Receive Date: 20140506
  Receipt Date: 20140708
  Transmission Date: 20150326
  Serious: No
  Sender: FDA-Public Use
  Company Number: US-PFIZER INC-2014120771

PATIENT
  Sex: Male

DRUGS (2)
  1. LYRICA [Suspect]
     Active Substance: PREGABALIN
     Dosage: 1 DF, UNK
     Dates: end: 201404
  2. LYRICA [Suspect]
     Active Substance: PREGABALIN
     Dosage: 4 DF, UNK

REACTIONS (4)
  - Headache [Unknown]
  - Feeling abnormal [Unknown]
  - Pain [Unknown]
  - Nervousness [Unknown]

NARRATIVE: CASE EVENT DATE: 2014
